FAERS Safety Report 8986866 (Version 1)
Quarter: 2012Q4

REPORT INFORMATION
  Report Type: 
  Country: GB (occurrence: GB)
  Receive Date: 20121226
  Receipt Date: 20121226
  Transmission Date: 20130627
  Serious: Yes (Hospitalization)
  Sender: FDA-Public Use
  Company Number: PHHY2012GB118179

PATIENT
  Sex: Female

DRUGS (2)
  1. CO-CODAMOL [Suspect]
  2. SOLPADEINE [Suspect]

REACTIONS (11)
  - Skin exfoliation [Unknown]
  - Fatigue [Unknown]
  - Diarrhoea [Unknown]
  - Asthenia [Unknown]
  - Fluid retention [Unknown]
  - Deafness [Unknown]
  - Platelet count decreased [Unknown]
  - Somnolence [Unknown]
  - Constipation [Unknown]
  - Nausea [Unknown]
  - Rash [Unknown]
